FAERS Safety Report 9009752 (Version 1)
Quarter: 2013Q1

REPORT INFORMATION
  Report Type: Spontaneous
  Country: TH (occurrence: TH)
  Receive Date: 20130110
  Receipt Date: 20130110
  Transmission Date: 20140127
  Serious: Yes (Death, Other)
  Sender: FDA-Public Use
  Company Number: TH-ROCHE-1172480

PATIENT
  Sex: 0

DRUGS (1)
  1. RITUXIMAB [Suspect]
     Indication: NEOPLASM MALIGNANT
     Route: 065

REACTIONS (31)
  - Death [Fatal]
  - Anaphylactic reaction [Unknown]
  - Guillain-Barre syndrome [Unknown]
  - Respiratory distress [Unknown]
  - Bronchospasm [Unknown]
  - Hepatic failure [Unknown]
  - Rash [Unknown]
  - Rash maculo-papular [Unknown]
  - Rash erythematous [Unknown]
  - Dyspnoea [Unknown]
  - Hypotension [Unknown]
  - Infection [Unknown]
  - Interstitial lung disease [Unknown]
  - Nausea [Unknown]
  - Pyrexia [Unknown]
  - Myalgia [Unknown]
  - Chills [Unknown]
  - Hypertension [Unknown]
  - Cyanosis [Unknown]
  - Urticaria [Unknown]
  - Abdominal pain [Unknown]
  - Agitation [Unknown]
  - Dementia [Unknown]
  - Depression [Unknown]
  - Drug level increased [Unknown]
  - Hypoxia [Unknown]
  - Neoplasm recurrence [Unknown]
  - Pneumonia [Unknown]
  - Vomiting [Unknown]
  - Neutropenia [Unknown]
  - Pruritus [Unknown]
